FAERS Safety Report 8157953-8 (Version None)
Quarter: 2012Q1

REPORT INFORMATION
  Report Type: 
  Country: None (occurrence: None)
  Receive Date: 20120222
  Receipt Date: 20120212
  Transmission Date: 20120608
  Serious: Yes (Other)
  Sender: FDA-Public Use
  Company Number: PHHY2012PL012999

PATIENT

DRUGS (2)
  1. ANGIOTENSIN CONVERTING ENZYME BLOCKERS [Suspect]
  2. CYCLOSPORINE [Suspect]
     Indication: NEPHROTIC SYNDROME
     Dosage: UNK UKN, UNK

REACTIONS (2)
  - RENAL FAILURE ACUTE [None]
  - HYPOVOLAEMIA [None]
